FAERS Safety Report 7875792-X (Version None)
Quarter: 2011Q4

REPORT INFORMATION
  Report Type: 
  Country: None (occurrence: None)
  Receive Date: 20111031
  Receipt Date: 20111016
  Transmission Date: 20120403
  Serious: Yes (Other)
  Sender: FDA-Public Use
  Company Number: PHHY2011PL92273

PATIENT
  Age: 38 Year
  Sex: Female

DRUGS (6)
  1. MYCOPHENOLATE MOFETIL [Concomitant]
     Indication: IMMUNOSUPPRESSION
  2. PERINDOPRIL ERBUMINE [Concomitant]
     Indication: HYPERTENSION
  3. DILTIAZEM HCL [Concomitant]
     Indication: HYPERTENSION
  4. METOPROLOL [Concomitant]
     Indication: HYPERTENSION
  5. CYCLOSPORINE [Suspect]
     Indication: RENAL TRANSPLANT
  6. PREDNISONE [Concomitant]
     Indication: IMMUNOSUPPRESSION

REACTIONS (11)
  - ENDOMETRIAL HYPERPLASIA [None]
  - ANAEMIA [None]
  - UTERINE LEIOMYOMA [None]
  - SQUAMOUS CELL CARCINOMA [None]
  - VULVAR DYSPLASIA [None]
  - CERVIX NEOPLASM [None]
  - MENSTRUATION IRREGULAR [None]
  - HAEMORRHAGE [None]
  - PAPILLOMA VIRAL INFECTION [None]
  - CERVICAL DYSPLASIA [None]
  - VULVAL CANCER [None]
